FAERS Safety Report 16742593 (Version 1)
Quarter: 2019Q3

REPORT INFORMATION
  Report Type: Report from Study
  Country: FR (occurrence: FR)
  Receive Date: 20190826
  Receipt Date: 20190826
  Transmission Date: 20191005
  Serious: Yes (Other)
  Sender: FDA-Public Use
  Company Number: FR-SHIRE-FR201847740

PATIENT

DRUGS (9)
  1. SELENIUM [Concomitant]
     Active Substance: SELENIUM
     Indication: SUPPLEMENTATION THERAPY
  2. RUBOZINC [Concomitant]
     Active Substance: ZINC GLUCONATE
     Indication: SUPPLEMENTATION THERAPY
  3. INNOHEP [Concomitant]
     Active Substance: TINZAPARIN SODIUM
     Indication: THROMBOSIS
  4. COPPER [Concomitant]
     Active Substance: COPPER
     Indication: SUPPLEMENTATION THERAPY
  5. TIAPRIDAL [Concomitant]
     Active Substance: TIAPRIDE HYDROCHLORIDE
     Indication: ANXIETY
  6. TEDUGLUTIDE [Suspect]
     Active Substance: TEDUGLUTIDE
     Indication: SHORT-BOWEL SYNDROME
     Dosage: 3.3 MG (DAILY DOSE OF 0.05 MG KG, 7 DOSES PER WEEK), 1X/DAY:QD
     Route: 065
     Dates: start: 20160324, end: 20181205
  7. CHOLURSO [Concomitant]
     Active Substance: URSODIOL
     Indication: LIVER DISORDER
  8. SODIUM BICARBONATE. [Concomitant]
     Active Substance: SODIUM BICARBONATE
     Indication: SUPPLEMENTATION THERAPY
  9. EUPANTOL [Concomitant]
     Active Substance: PANTOPRAZOLE SODIUM
     Indication: ABDOMINAL PAIN

REACTIONS (5)
  - Liver disorder [Not Recovered/Not Resolved]
  - Dehydration [Recovered/Resolved]
  - Cardiac failure [Not Recovered/Not Resolved]
  - Hypokalaemia [Not Recovered/Not Resolved]
  - Abdominal pain [Recovered/Resolved]

NARRATIVE: CASE EVENT DATE: 20181203
